FAERS Safety Report 16969262 (Version 3)
Quarter: 2019Q4

REPORT INFORMATION
  Report Type: Report from Study
  Country: CO (occurrence: CO)
  Receive Date: 20191029
  Receipt Date: 20191127
  Transmission Date: 20200122
  Serious: Yes (Hospitalization)
  Sender: FDA-Public Use
  Company Number: CO-ASTELLAS-2019US042657

PATIENT
  Age: 36 Year
  Sex: Male

DRUGS (10)
  1. RANITIDINE. [Concomitant]
     Active Substance: RANITIDINE
     Indication: GASTRITIS
     Route: 048
  2. TACROLIMUS. [Suspect]
     Active Substance: TACROLIMUS
     Dosage: 5MG IN THE MORNING AND 3MG IN THE AFTERNOON
     Route: 048
     Dates: start: 201911
  3. VERAPAMIL [Concomitant]
     Active Substance: VERAPAMIL HYDROCHLORIDE
     Indication: BLOOD PRESSURE ABNORMAL
     Route: 048
  4. TACROLIMUS. [Suspect]
     Active Substance: TACROLIMUS
     Dosage: 15 MG, ONCE DAILY (2 CAPSULES OF 5MG AND 5 CAPSULES OF 1MG)
     Route: 048
     Dates: start: 201909, end: 201909
  5. TACROLIMUS. [Suspect]
     Active Substance: TACROLIMUS
     Indication: RENAL TRANSPLANT
     Dosage: 12 MG, ONCE DAILY (2 CAPSULES OF 5MG AND 2 CAPSULES OF 1 MG)
     Route: 048
     Dates: start: 20190205, end: 20190807
  6. TRAZODONE [Concomitant]
     Active Substance: TRAZODONE HYDROCHLORIDE
     Indication: SLEEP DISORDER
     Dosage: UNK UNK, TWICE WEEKLY
     Route: 048
  7. MYCOPHENOLATE [Concomitant]
     Active Substance: MYCOPHENOLIC ACID
     Indication: RENAL TRANSPLANT
     Dosage: 1080 MG, ONCE DAILY (720 MG IN MORNING AND 360 MG IN EVENING)
     Route: 048
     Dates: start: 20150407
  8. PRAZOSIN. [Concomitant]
     Active Substance: PRAZOSIN
     Indication: BLOOD PRESSURE ABNORMAL
     Route: 048
  9. TACROLIMUS. [Suspect]
     Active Substance: TACROLIMUS
     Dosage: 9 MG, ONCE DAILY (1 CAPSULE OF 5MG AND 4 CAPSULES OF 1 MG)
     Route: 048
     Dates: start: 20190808, end: 201909
  10. MINOXIDIL. [Concomitant]
     Active Substance: MINOXIDIL
     Indication: BLOOD PRESSURE ABNORMAL
     Route: 048

REACTIONS (6)
  - Tonsillitis [Recovered/Resolved]
  - Blood creatinine increased [Recovered/Resolved]
  - Inappropriate schedule of product administration [Unknown]
  - Proteinuria [Not Recovered/Not Resolved]
  - Blood urine [Recovered/Resolved]
  - Immunosuppressant drug level decreased [Not Recovered/Not Resolved]

NARRATIVE: CASE EVENT DATE: 201909
